FAERS Safety Report 5742621-X (Version None)
Quarter: 2008Q2

REPORT INFORMATION
  Report Type: 
  Country: None (occurrence: None)
  Receive Date: 20080519
  Receipt Date: 20080508
  Transmission Date: 20081010
  Serious: Yes (Death, Hospitalization)
  Sender: FDA-Public Use
  Company Number: GB-AMGEN-US277388

PATIENT
  Sex: Female
  Weight: 50 kg

DRUGS (1)
  1. ENBREL [Suspect]
     Indication: RHEUMATOID ARTHRITIS
     Route: 058
     Dates: start: 20070501, end: 20080417

REACTIONS (1)
  - CEREBRAL HAEMORRHAGE [None]
